FAERS Safety Report 10582707 (Version 1)
Quarter: 2014Q4

REPORT INFORMATION
  Report Type: Spontaneous
  Country: US (occurrence: US)
  Receive Date: 20141113
  Receipt Date: 20141113
  Transmission Date: 20150529
  Serious: No
  Sender: FDA-Public Use
  Company Number: US-009507513-1411USA004353

PATIENT
  Sex: Female
  Weight: 129.25 kg

DRUGS (1)
  1. NEXPLANON [Suspect]
     Active Substance: ETONOGESTREL
     Indication: CONTRACEPTION
     Dosage: 1 ROD, UNK
     Route: 059
     Dates: start: 20141015, end: 20141024

REACTIONS (4)
  - Application site discomfort [Recovered/Resolved]
  - Device deployment issue [Recovered/Resolved]
  - Implant site erythema [Recovered/Resolved]
  - Implant site irritation [Recovered/Resolved]

NARRATIVE: CASE EVENT DATE: 201410
